FAERS Safety Report 9109226 (Version 2)
Quarter: 2013Q2

REPORT INFORMATION
  Report Type: Spontaneous
  Country: GB (occurrence: GB)
  Receive Date: 20130222
  Receipt Date: 20130506
  Transmission Date: 20140414
  Serious: Yes (Death, Hospitalization, Other)
  Sender: FDA-Public Use
  Company Number: PHFR2013GB001308

PATIENT
  Age: 61 Year
  Sex: Female
  Weight: 74 kg

DRUGS (7)
  1. TASIGNA [Suspect]
     Indication: CHRONIC MYELOID LEUKAEMIA
     Dosage: 400 MG, BID
     Route: 048
     Dates: start: 201208, end: 201212
  2. CITALOPRAM [Concomitant]
  3. SERTRALINE [Concomitant]
     Indication: DEPRESSION
     Route: 048
  4. ZOPIDEM [Concomitant]
     Indication: POOR QUALITY SLEEP
     Dosage: 3.75 MG, UNK
     Route: 048
  5. FUROSEMIDE [Concomitant]
     Indication: OEDEMA
     Route: 048
  6. CO CODAMOL [Concomitant]
     Indication: PAIN
     Route: 048
  7. METOCLOPRAMIDE [Concomitant]
     Indication: NAUSEA
     Dosage: 10 MG, TID
     Route: 048

REACTIONS (10)
  - Myocardial rupture [Fatal]
  - Cardiac arrest [Unknown]
  - Cardiac disorder [Unknown]
  - Pulseless electrical activity [Unknown]
  - Pain [Unknown]
  - Feeling abnormal [Unknown]
  - Ascites [Unknown]
  - Eye haemorrhage [Unknown]
  - Visual impairment [Unknown]
  - Malaise [Unknown]
